FAERS Safety Report 21952317 (Version 2)
Quarter: 2023Q1

REPORT INFORMATION
  Report Type: Report from Study
  Country: US (occurrence: US)
  Receive Date: 20230203
  Receipt Date: 20230302
  Transmission Date: 20230417
  Serious: Yes (Death, Other)
  Sender: FDA-Public Use
  Company Number: US-JNJFOC-20230146342

PATIENT

DRUGS (2)
  1. SPORANOX [Suspect]
     Active Substance: ITRACONAZOLE
     Indication: Blastomycosis
     Dosage: MORE THAN 1 MCG/ML
     Route: 048
  2. SPORANOX [Suspect]
     Active Substance: ITRACONAZOLE
     Indication: Blastomycosis
     Dosage: MORE THAN 1 MCG/ML
     Route: 048

REACTIONS (18)
  - Blastomycosis [Fatal]
  - Electrocardiogram QT prolonged [Unknown]
  - Cardiac failure congestive [Unknown]
  - Hypokalaemia [Unknown]
  - Drug level below therapeutic [Unknown]
  - Adverse event [Unknown]
  - Toxicity to various agents [Unknown]
  - Skin disorder [Unknown]
  - Respiratory disorder [Unknown]
  - Hepatic function abnormal [Unknown]
  - Oedema [Unknown]
  - Gastrointestinal disorder [Unknown]
  - Headache [Unknown]
  - Hypertension [Unknown]
  - Alopecia [Unknown]
  - Tremor [Unknown]
  - Treatment failure [Unknown]
  - Therapeutic product effect incomplete [Unknown]
